FAERS Safety Report 5332464-3 (Version None)
Quarter: 2007Q2

REPORT INFORMATION
  Report Type: 
  Country: None (occurrence: None)
  Receive Date: 20070523
  Receipt Date: 20070510
  Transmission Date: 20071010
  Serious: Yes (Hospitalization)
  Sender: FDA-Public Use
  Company Number: FR-ASTRAZENECA-2007CG00735

PATIENT
  Age: 62 Year
  Sex: Female
  Weight: 42 kg

DRUGS (6)
  1. NEXIUM [Suspect]
     Route: 048
  2. DELURSAN [Suspect]
     Indication: CHOLANGITIS SCLEROSING
     Route: 048
  3. AZATHIOPRINE SODIUM [Suspect]
     Route: 048
     Dates: start: 20061201, end: 20070212
  4. PENTASA [Suspect]
     Indication: COLITIS ULCERATIVE
     Route: 048
     Dates: start: 20060101
  5. FOSAMAX [Suspect]
     Route: 048
  6. CETIRIZINE HCL [Suspect]
     Route: 048

REACTIONS (4)
  - COLITIS ULCERATIVE [None]
  - CONDITION AGGRAVATED [None]
  - HYPOPLASTIC ANAEMIA [None]
  - NORMOCHROMIC NORMOCYTIC ANAEMIA [None]
